FAERS Safety Report 4784712-6 (Version None)
Quarter: 2005Q3

REPORT INFORMATION
  Report Type: 
  Country: None (occurrence: None)
  Receive Date: 20050930
  Receipt Date: 20041221
  Transmission Date: 20060218
  Serious: Yes (Death)
  Sender: FDA-Public Use
  Company Number: BR-ROCHE-390337

PATIENT
  Age: 47 Day

DRUGS (2)
  1. ROACCUTAN [Suspect]
     Indication: ACNE
     Dates: start: 20040308, end: 20041213
  2. MINESSE [Concomitant]
     Indication: CONTRACEPTION
     Dates: start: 20020615, end: 20041213

REACTIONS (3)
  - DEATH NEONATAL [None]
  - DRUG EXPOSURE DURING PREGNANCY [None]
  - PREMATURE BABY [None]
